FAERS Safety Report 4442940-3 (Version None)
Quarter: 2004Q3

REPORT INFORMATION
  Report Type: 
  Country: None (occurrence: None)
  Receive Date: 20040907
  Receipt Date: 20040907
  Transmission Date: 20050211
  Serious: Yes (Disabling)
  Sender: FDA-Public Use
  Company Number: None

PATIENT
  Sex: Male
  Weight: 72.5755 kg

DRUGS (8)
  1. AMIODARONE HCL [Suspect]
     Indication: ATRIAL FIBRILLATION
     Dosage: 600MG / -} 400MG/ DAY -}200 MG/ DAY -} 100 MG/ DAY
     Dates: start: 20040220
  2. AMIODARONE HCL [Suspect]
     Indication: ATRIAL FIBRILLATION
     Dosage: 600MG / -} 400MG/ DAY -}200 MG/ DAY -} 100 MG/ DAY
     Dates: start: 20040229
  3. AMIODARONE HCL [Suspect]
     Indication: ATRIAL FIBRILLATION
     Dosage: 600MG / -} 400MG/ DAY -}200 MG/ DAY -} 100 MG/ DAY
     Dates: start: 20040421
  4. NEXIUM [Concomitant]
  5. COUMADIN [Concomitant]
  6. ANTIOXIDANT/VITAMIN [Concomitant]
  7. TRENTAL [Concomitant]
  8. .. [Concomitant]

REACTIONS (4)
  - CATARACT [None]
  - DEEP VEIN THROMBOSIS [None]
  - OPTIC ISCHAEMIC NEUROPATHY [None]
  - PROSTATE CANCER STAGE 0 [None]
